FAERS Safety Report 6908156-3 (Version None)
Quarter: 2010Q3

REPORT INFORMATION
  Report Type: 
  Country: None (occurrence: None)
  Receive Date: 20100708
  Receipt Date: 20090323
  Transmission Date: 20110219
  Serious: Yes (Other)
  Sender: FDA-Public Use
  Company Number: 2009178808

PATIENT
  Age: 50 Year
  Sex: Female
  Weight: 74.4 kg

DRUGS (1)
  1. CHANTIX [Suspect]
     Indication: TOBACCO ABUSE

REACTIONS (1)
  - CONSTIPATION [None]
